FAERS Safety Report 23135615 (Version 3)
Quarter: 2023Q4

REPORT INFORMATION
  Report Type: Report from Study
  Country: CN (occurrence: CN)
  Receive Date: 20231101
  Receipt Date: 20231122
  Transmission Date: 20240110
  Serious: Yes (Hospitalization)
  Sender: FDA-Public Use
  Company Number: CN-ANTENGENE-20231002078

PATIENT
  Age: 65 Year
  Sex: Female
  Weight: 47 kg

DRUGS (12)
  1. SELINEXOR [Suspect]
     Active Substance: SELINEXOR
     Indication: Diffuse large B-cell lymphoma
     Dosage: 60 MG, QW
     Route: 048
     Dates: start: 20230713, end: 20230722
  2. SELINEXOR [Suspect]
     Active Substance: SELINEXOR
     Dosage: 60 MG, QW
     Route: 048
     Dates: start: 20230807, end: 20230821
  3. SELINEXOR [Suspect]
     Active Substance: SELINEXOR
     Dosage: 60 MG, QW
     Route: 048
     Dates: start: 20230908, end: 20230917
  4. SELINEXOR [Suspect]
     Active Substance: SELINEXOR
     Dosage: 60 MG, QW
     Route: 048
     Dates: start: 20231008, end: 20231014
  5. LENALIDOMIDE [Suspect]
     Active Substance: LENALIDOMIDE
     Indication: Diffuse large B-cell lymphoma
     Dosage: 25 MG, QD
     Route: 048
     Dates: start: 20230713, end: 20230722
  6. LENALIDOMIDE [Suspect]
     Active Substance: LENALIDOMIDE
     Dosage: 25 MG, QD
     Route: 048
     Dates: start: 20230808, end: 20230817
  7. LENALIDOMIDE [Suspect]
     Active Substance: LENALIDOMIDE
     Dosage: 25 MG, QD
     Route: 048
     Dates: start: 20230908, end: 20230917
  8. LENALIDOMIDE [Suspect]
     Active Substance: LENALIDOMIDE
     Dosage: 25 MG, QD
     Route: 048
     Dates: start: 20231008, end: 20231014
  9. RITUXIMAB [Suspect]
     Active Substance: RITUXIMAB
     Indication: Diffuse large B-cell lymphoma
     Dosage: 593 MG, CYCLIC
     Route: 042
     Dates: start: 20230713, end: 20230713
  10. RITUXIMAB [Suspect]
     Active Substance: RITUXIMAB
     Dosage: 593 MG, CYCLIC
     Route: 042
     Dates: start: 20230808, end: 20230808
  11. RITUXIMAB [Suspect]
     Active Substance: RITUXIMAB
     Dosage: 593 MG, CYCLIC
     Route: 042
     Dates: start: 20230908, end: 20230908
  12. RITUXIMAB [Suspect]
     Active Substance: RITUXIMAB
     Dosage: 593 MG, CYCLIC
     Route: 042
     Dates: start: 20231008, end: 20231008

REACTIONS (1)
  - Platelet count decreased [Recovering/Resolving]

NARRATIVE: CASE EVENT DATE: 20231018
